FAERS Safety Report 6084733-X (Version None)
Quarter: 2009Q1

REPORT INFORMATION
  Report Type: 
  Country: None (occurrence: None)
  Receive Date: 20090217
  Receipt Date: 20090210
  Transmission Date: 20090719
  Serious: Yes (Death)
  Sender: FDA-Public Use
  Company Number: 128253

PATIENT
  Age: 69 Year
  Sex: Male

DRUGS (10)
  1. ETOPOSIDE [Suspect]
     Indication: NON-HODGKIN'S LYMPHOMA
  2. MITOXANTRONE HYDROCHLORIDE [Suspect]
     Indication: NON-HODGKIN'S LYMPHOMA
  3. VINCRISTINE [Suspect]
     Indication: NON-HODGKIN'S LYMPHOMA
  4. (RITUXIMAB) [Suspect]
     Indication: NON-HODGKIN'S LYMPHOMA
  5. CYCLOPHOSPHAMIDE [Suspect]
     Indication: NON-HODGKIN'S LYMPHOMA
  6. (PREDNISOLONE) [Suspect]
     Indication: NON-HODGKIN'S LYMPHOMA
  7. (PREDNISOLONE) [Concomitant]
  8. (WARFARIN) [Concomitant]
  9. (CANDESARTAN) [Concomitant]
  10. (OMEPRAZOLE) [Concomitant]

REACTIONS (18)
  - ACALCULIA [None]
  - AMINO ACID LEVEL INCREASED [None]
  - BRAIN OEDEMA [None]
  - CENTRAL NERVOUS SYSTEM NECROSIS [None]
  - CONTINUOUS HAEMODIAFILTRATION [None]
  - DISORIENTATION [None]
  - DYSPHASIA [None]
  - HEPATIC FUNCTION ABNORMAL [None]
  - HYPERAMMONAEMIC ENCEPHALOPATHY [None]
  - LABORATORY TEST ABNORMAL [None]
  - LIVER FUNCTION TEST ABNORMAL [None]
  - METABOLIC ACIDOSIS [None]
  - MOBILITY DECREASED [None]
  - NORMOCHROMIC NORMOCYTIC ANAEMIA [None]
  - OROTICACIDURIA [None]
  - PARTIAL SEIZURES [None]
  - RESPIRATORY ALKALOSIS [None]
  - THERAPEUTIC RESPONSE DECREASED [None]
